FAERS Safety Report 21450991 (Version 1)
Quarter: 2022Q4

REPORT INFORMATION
  Report Type: Spontaneous
  Country: US (occurrence: US)
  Receive Date: 20221013
  Receipt Date: 20221013
  Transmission Date: 20230113
  Serious: Yes (Hospitalization, Other)
  Sender: FDA-Public Use
  Company Number: US-BRISTOL-MYERS SQUIBB COMPANY-2022-118318

PATIENT
  Age: 72 Year
  Sex: Male
  Weight: 81.646 kg

DRUGS (1)
  1. REVLIMID [Suspect]
     Active Substance: LENALIDOMIDE
     Indication: Plasma cell myeloma
     Dosage: DAILY FOR 14 DAYS, THEN 14 DAYS OFF
     Route: 048
     Dates: start: 20160824

REACTIONS (4)
  - Full blood count decreased [Recovering/Resolving]
  - Fall [Recovering/Resolving]
  - Ankle fracture [Recovering/Resolving]
  - Off label use [Unknown]
